FAERS Safety Report 25845799 (Version 1)
Quarter: 2025Q3

REPORT INFORMATION
  Report Type: Spontaneous
  Country: US (occurrence: None)
  Receive Date: 20250924
  Receipt Date: 20250924
  Transmission Date: 20251021
  Serious: Yes (unspecified)
  Sender: FDA-CTU
  Company Number: None

PATIENT
  Age: 75 Year
  Sex: Male
  Weight: 64.9 kg

DRUGS (1)
  1. GAMUNEX-C [Suspect]
     Active Substance: HUMAN IMMUNOGLOBULIN G
     Indication: Plasma cell myeloma recurrent
     Route: 041

REACTIONS (3)
  - Infusion site pruritus [None]
  - Infusion site urticaria [None]
  - Infusion site erythema [None]

NARRATIVE: CASE EVENT DATE: 20250912
